FAERS Safety Report 5598093-1 (Version None)
Quarter: 2008Q1

REPORT INFORMATION
  Report Type: 
  Country: None (occurrence: None)
  Receive Date: 20080122
  Receipt Date: 20080111
  Transmission Date: 20080703
  Serious: Yes (Hospitalization)
  Sender: FDA-Public Use
  Company Number: PHBS2008GT00723

PATIENT
  Age: 67 Year
  Sex: Male

DRUGS (10)
  1. CIPREX [Concomitant]
     Dosage: 1 TABLET/DAY
     Route: 048
  2. LYRICA [Concomitant]
     Route: 048
  3. STRATTERA [Concomitant]
     Dosage: 6 MG, UNK
     Route: 048
  4. LANZOPRAL [Concomitant]
     Route: 048
  5. BISOPROLOL FUMARATE [Concomitant]
     Dosage: 5 MG/DAY
     Route: 048
  6. PLAVIX [Concomitant]
     Dosage: 75 MG/DAY
     Route: 048
  7. LANOXIN [Concomitant]
  8. EXFORGE [Suspect]
     Indication: HYPERTENSION
     Dosage: VALS 160 / AMLO 10 MG/DAY
     Route: 048
  9. TRILEPTAL [Suspect]
     Dosage: 300 MG, Q12H
     Route: 048
  10. EUTIROX [Concomitant]
     Dosage: 100 UG/DAY
     Route: 048

REACTIONS (2)
  - CONVULSION [None]
  - HYPERTENSION [None]
